FAERS Safety Report 23150169 (Version 2)
Quarter: 2023Q4

REPORT INFORMATION
  Report Type: Spontaneous
  Country: BR (occurrence: BR)
  Receive Date: 20231106
  Receipt Date: 20231201
  Transmission Date: 20240110
  Serious: Yes (Other)
  Sender: FDA-Public Use
  Company Number: BR-NOVOPROD-1135134

PATIENT
  Age: 44 Year
  Sex: Male
  Weight: 120 kg

DRUGS (1)
  1. SAXENDA [Suspect]
     Active Substance: LIRAGLUTIDE
     Indication: Obesity
     Dosage: 3 MG, QD(FOR 6 MONHS)

REACTIONS (4)
  - Illness [Unknown]
  - Mania [Unknown]
  - Bipolar disorder [Unknown]
  - Inappropriate schedule of product administration [Recovered/Resolved]
